FAERS Safety Report 13938457 (Version 1)
Quarter: 2017Q3

REPORT INFORMATION
  Report Type: Spontaneous
  Country: US (occurrence: US)
  Receive Date: 20170905
  Receipt Date: 20170905
  Transmission Date: 20171127
  Serious: Yes (Disabling)
  Sender: FDA-Public Use
  Company Number: None

PATIENT
  Age: 66 Year
  Sex: Female
  Weight: 82.3 kg

DRUGS (3)
  1. ENOXAPARIN [Concomitant]
     Active Substance: ENOXAPARIN
  2. CLOPIDOGREL [Suspect]
     Active Substance: CLOPIDOGREL BISULFATE
     Route: 048
  3. ASPIRIN. [Suspect]
     Active Substance: ASPIRIN
     Route: 048

REACTIONS (7)
  - Thalamus haemorrhage [None]
  - Post procedural complication [None]
  - Bradyarrhythmia [None]
  - Tracheal oedema [None]
  - Cerebral haematoma [None]
  - Haematoma [None]
  - Laryngeal oedema [None]

NARRATIVE: CASE EVENT DATE: 20170720
